FAERS Safety Report 18053158 (Version 15)
Quarter: 2020Q4

REPORT INFORMATION
  Report Type: Report from Study
  Country: JP (occurrence: JP)
  Receive Date: 20200722
  Receipt Date: 20201225
  Transmission Date: 20210113
  Serious: Yes (Life-Threatening, Hospitalization, Other)
  Sender: FDA-Public Use
  Company Number: NVSJ2020JP006878

PATIENT
  Age: 23 Month
  Sex: Female
  Weight: 10.1 kg

DRUGS (14)
  1. ZOLGENSMA [Suspect]
     Active Substance: ONASEMNOGENE ABEPARVOVEC-XIOI
     Indication: SPINAL MUSCULAR ATROPHY
     Dosage: 1.1X10?14VG/KG, UNK
     Route: 041
     Dates: start: 20200708, end: 20200708
  2. OMEPRAZOLE. [Concomitant]
     Active Substance: OMEPRAZOLE
     Indication: GASTRITIS PROPHYLAXIS
     Dosage: 4 MG
     Route: 041
     Dates: start: 20200722, end: 20200727
  3. PREDNISOLONE. [Concomitant]
     Active Substance: PREDNISOLONE
     Dosage: 1 MG/KG
     Route: 065
  4. CLAFORAN [Concomitant]
     Active Substance: CEFOTAXIME SODIUM
     Indication: INFECTION PROPHYLAXIS
     Dosage: 500 MG
     Route: 041
     Dates: start: 20200722, end: 20200727
  5. BANAN [Concomitant]
     Active Substance: CEFPODOXIME PROXETIL
     Indication: INFECTION PROPHYLAXIS
     Dosage: 30 MG
     Route: 048
     Dates: start: 20200724, end: 20200824
  6. TAKEPRON [Concomitant]
     Active Substance: LANSOPRAZOLE
     Indication: GASTRITIS PROPHYLAXIS
     Dosage: 5 MG
     Route: 048
     Dates: start: 20200728, end: 20200811
  7. FAMOTIDINE. [Concomitant]
     Active Substance: FAMOTIDINE
     Indication: GASTRITIS PROPHYLAXIS
     Dosage: 5 MG
     Route: 048
     Dates: start: 20200812, end: 20200829
  8. PREDNISOLONE. [Concomitant]
     Active Substance: PREDNISOLONE
     Dosage: 1 MG/KG, QD
     Route: 065
  9. PREDNISOLONE. [Concomitant]
     Active Substance: PREDNISOLONE
     Dosage: 10 MG
     Route: 048
     Dates: start: 20200728, end: 20200803
  10. PREDNISOLONE. [Concomitant]
     Active Substance: PREDNISOLONE
     Dosage: 0.75 MG/KG, QD
     Route: 065
  11. PREDNISOLONE. [Concomitant]
     Active Substance: PREDNISOLONE
     Indication: HEPATIC FUNCTION ABNORMAL
     Dosage: 2 MG/KG
     Route: 065
     Dates: start: 20200713
  12. PREDNISOLONE. [Concomitant]
     Active Substance: PREDNISOLONE
     Dosage: 10 MG
     Route: 048
     Dates: start: 20200804, end: 20200817
  13. PREDNISOLONE. [Concomitant]
     Active Substance: PREDNISOLONE
     Indication: PRODUCT USED FOR UNKNOWN INDICATION
     Dosage: 1 MG/KG
     Route: 065
     Dates: start: 20200707, end: 20200712
  14. PREDNISOLONE. [Concomitant]
     Active Substance: PREDNISOLONE
     Dosage: 7.5 MG
     Route: 048
     Dates: start: 20200818, end: 20200829

REACTIONS (30)
  - Thrombotic microangiopathy [Not Recovered/Not Resolved]
  - Diarrhoea [Not Recovered/Not Resolved]
  - General physical health deterioration [Not Recovered/Not Resolved]
  - Blood potassium increased [Unknown]
  - Haemolytic anaemia [Unknown]
  - Aspartate aminotransferase increased [Not Recovered/Not Resolved]
  - Blood lactate dehydrogenase increased [Not Recovered/Not Resolved]
  - Pyrexia [Recovered/Resolved]
  - Renal impairment [Recovering/Resolving]
  - Platelet count decreased [Not Recovered/Not Resolved]
  - Mesangioproliferative glomerulonephritis [Unknown]
  - Haptoglobin decreased [Unknown]
  - Complement factor C4 decreased [Unknown]
  - Hypertension [Not Recovered/Not Resolved]
  - Alanine aminotransferase increased [Not Recovered/Not Resolved]
  - Decreased appetite [Not Recovered/Not Resolved]
  - Red blood cell abnormality [Unknown]
  - Acute kidney injury [Not Recovered/Not Resolved]
  - Cardiac failure [Not Recovered/Not Resolved]
  - Vomiting [Not Recovered/Not Resolved]
  - Asthenia [Unknown]
  - Urinary occult blood positive [Unknown]
  - Protein urine present [Unknown]
  - Blood pressure increased [Not Recovered/Not Resolved]
  - White blood cell disorder [Not Recovered/Not Resolved]
  - Liver function test abnormal [Not Recovered/Not Resolved]
  - Troponin I increased [Unknown]
  - Haematuria [Unknown]
  - Dysuria [Not Recovered/Not Resolved]
  - Total complement activity decreased [Unknown]

NARRATIVE: CASE EVENT DATE: 202007
